FAERS Safety Report 6293034-6 (Version None)
Quarter: 2009Q3

REPORT INFORMATION
  Report Type: 
  Country: None (occurrence: None)
  Receive Date: 20090731
  Receipt Date: 20090723
  Transmission Date: 20100115
  Serious: Yes (Other)
  Sender: FDA-Public Use
  Company Number: BR-BRISTOL-MYERS SQUIBB COMPANY-14714992

PATIENT
  Age: 40 Year
  Sex: Male
  Weight: 73 kg

DRUGS (2)
  1. ABILIFY [Suspect]
     Indication: DEPRESSION
     Dosage: STARTED WITH 20MG THEN INCREASED TO 30MG
     Route: 048
     Dates: start: 20081001
  2. LAMITOR [Concomitant]

REACTIONS (5)
  - DEAFNESS [None]
  - DRUG INEFFECTIVE [None]
  - LABYRINTHITIS [None]
  - SOMNOLENCE [None]
  - VIRAL INFECTION [None]
